FAERS Safety Report 19098239 (Version 1)
Quarter: 2021Q2

REPORT INFORMATION
  Report Type: Report from Study
  Country: RU (occurrence: RU)
  Receive Date: 20210406
  Receipt Date: 20210406
  Transmission Date: 20210717
  Serious: Yes (Hospitalization, Other)
  Sender: FDA-Public Use
  Company Number: RU-TAKEDA-2021TUS020434

PATIENT
  Age: 60 Year
  Sex: Male
  Weight: 162 kg

DRUGS (2)
  1. TETRACYCLINE [Concomitant]
     Active Substance: TETRACYCLINE
     Dosage: 2000 MILLIGRAM
     Dates: start: 20191225, end: 20200110
  2. VEDOLIZUMAB [Suspect]
     Active Substance: VEDOLIZUMAB
     Indication: CROHN^S DISEASE
     Dosage: 300 MILLIGRAM
     Route: 042
     Dates: start: 201901

REACTIONS (1)
  - Crohn^s disease [Recovered/Resolved]

NARRATIVE: CASE EVENT DATE: 20191225
